FAERS Safety Report 25271180 (Version 2)
Quarter: 2025Q2

REPORT INFORMATION
  Report Type: Report from Study
  Country: US (occurrence: US)
  Receive Date: 20250506
  Receipt Date: 20250515
  Transmission Date: 20250717
  Serious: Yes (Other)
  Sender: ACADIA PHARMACEUTICALS
  Company Number: US-ACADIA PHARMACEUTICALS INC.-ACA-2025-PIM-005242

PATIENT
  Age: 73 Year
  Sex: Male

DRUGS (31)
  1. NUPLAZID [Suspect]
     Active Substance: PIMAVANSERIN TARTRATE
     Indication: Parkinson^s disease psychosis
     Dosage: 34 MILLIGRAM, QD
     Route: 048
     Dates: start: 20250408, end: 20250421
  2. NUPLAZID [Suspect]
     Active Substance: PIMAVANSERIN TARTRATE
     Indication: Hallucination
     Dosage: 34 MILLIGRAM, QD
     Route: 048
     Dates: end: 20250508
  3. NUPLAZID [Suspect]
     Active Substance: PIMAVANSERIN TARTRATE
     Indication: Delusion
  4. NUPLAZID [Suspect]
     Active Substance: PIMAVANSERIN TARTRATE
     Indication: Parkinson^s disease
  5. ALLOPURINOL [Concomitant]
     Active Substance: ALLOPURINOL
  6. AMLODIPINE [Concomitant]
     Active Substance: AMLODIPINE BESYLATE
  7. ASPIRIN [Concomitant]
     Active Substance: ASPIRIN
  8. LIPITOR [Concomitant]
     Active Substance: ATORVASTATIN CALCIUM
  9. ASTELIN [Concomitant]
     Active Substance: AZELASTINE HYDROCHLORIDE
  10. BASAGLAR KWIKPEN [Concomitant]
     Active Substance: INSULIN GLARGINE
  11. SYMBICORT [Concomitant]
     Active Substance: BUDESONIDE\FORMOTEROL FUMARATE DIHYDRATE
  12. CARBIDOPA\LEVODOPA [Concomitant]
     Active Substance: CARBIDOPA\LEVODOPA
  13. CHOLECALCIFEROL [Concomitant]
     Active Substance: CHOLECALCIFEROL
  14. LEXAPRO [Concomitant]
     Active Substance: ESCITALOPRAM OXALATE
  15. CHOLESTYRAMINE [Concomitant]
     Active Substance: CHOLESTYRAMINE
  16. FIASP [Concomitant]
     Active Substance: INSULIN ASPART
  17. LASIX [Concomitant]
     Active Substance: FUROSEMIDE
  18. GABAPENTIN [Concomitant]
     Active Substance: GABAPENTIN
  19. GLIMEPIRIDE [Concomitant]
     Active Substance: GLIMEPIRIDE
  20. HYDRALAZINE [Concomitant]
     Active Substance: HYDRALAZINE HYDROCHLORIDE
  21. IMDUR [Concomitant]
     Active Substance: ISOSORBIDE MONONITRATE
  22. JARDIANCE [Concomitant]
     Active Substance: EMPAGLIFLOZIN
  23. LIDOCAINE [Concomitant]
     Active Substance: LIDOCAINE
  24. LEVALBUTEROL HYDROCHLORIDE [Concomitant]
     Active Substance: LEVALBUTEROL HYDROCHLORIDE
  25. MAGNESIUM [Concomitant]
     Active Substance: MAGNESIUM
  26. OXYCODONE [Concomitant]
     Active Substance: OXYCODONE
  27. NARCAN [Concomitant]
     Active Substance: NALOXONE HYDROCHLORIDE
  28. MIRALAX [Concomitant]
     Active Substance: POLYETHYLENE GLYCOL 3350
  29. PRALUENT [Concomitant]
     Active Substance: ALIROCUMAB
  30. REPATHA [Concomitant]
     Active Substance: EVOLOCUMAB
  31. METOPROLOL [Concomitant]
     Active Substance: METOPROLOL

REACTIONS (6)
  - Syncope [Unknown]
  - Loss of consciousness [Not Recovered/Not Resolved]
  - Accident [Not Recovered/Not Resolved]
  - Head injury [Not Recovered/Not Resolved]
  - Memory impairment [Not Recovered/Not Resolved]
  - Fall [Not Recovered/Not Resolved]

NARRATIVE: CASE EVENT DATE: 20250421
